FAERS Safety Report 14108226 (Version 2)
Quarter: 2017Q4

REPORT INFORMATION
  Report Type: Spontaneous
  Country: US (occurrence: US)
  Receive Date: 20171019
  Receipt Date: 20171020
  Transmission Date: 20180321
  Serious: No
  Sender: FDA-Public Use
  Company Number: US-PFIZER INC-2017448613

PATIENT
  Sex: Female

DRUGS (2)
  1. MORPHINE SULFATE. [Suspect]
     Active Substance: MORPHINE SULFATE
     Dosage: 0.5 MG/ML VIAL, UNKNOWN DOSE
  2. CODEINE [Suspect]
     Active Substance: CODEINE
     Dosage: 30 MG TABLET, UNKNOWN DOSE

REACTIONS (1)
  - Drug hypersensitivity [Unknown]
